FAERS Safety Report 7992444-6 (Version None)
Quarter: 2011Q4

REPORT INFORMATION
  Report Type: 
  Country: None (occurrence: None)
  Receive Date: 20111219
  Receipt Date: 20111213
  Transmission Date: 20120403
  Serious: Yes (Life-Threatening, Hospitalization, Other)
  Sender: FDA-Public Use
  Company Number: PHEH2007US13089

PATIENT
  Sex: Female
  Weight: 79.819 kg

DRUGS (17)
  1. AREDIA [Suspect]
     Dosage: UNK
  2. DEXAMETHASONE [Concomitant]
  3. MULTI-VITAMINS [Concomitant]
  4. REVLIMID [Concomitant]
  5. EXTRA STRENGTH TYLENOL [Concomitant]
  6. ZOMETA [Suspect]
  7. CLEOCIN HYDROCHLORIDE [Concomitant]
  8. ALKERAN [Concomitant]
     Dosage: UNK
     Dates: end: 19980101
  9. PREDNISONE TAB [Concomitant]
     Dosage: UNK
     Dates: end: 19980101
  10. COUMADIN [Concomitant]
  11. CYMBALTA [Concomitant]
  12. SYNTHROID [Concomitant]
  13. ALTABAX [Concomitant]
  14. LISINOPRIL [Concomitant]
  15. VELCADE [Concomitant]
  16. PREDNISONE TAB [Concomitant]
     Dosage: UNK
     Dates: start: 20060101
  17. CHEMOTHERAPEUTICS NOS [Concomitant]

REACTIONS (68)
  - OSTEONECROSIS OF JAW [None]
  - ACTINOMYCOSIS [None]
  - BURSITIS [None]
  - CYSTITIS NONINFECTIVE [None]
  - RENAL CYST [None]
  - ASTHENIA [None]
  - GASTROINTESTINAL TOXICITY [None]
  - BLEPHARITIS [None]
  - SPINAL OSTEOARTHRITIS [None]
  - RENAL FAILURE [None]
  - PAIN IN JAW [None]
  - DEFORMITY [None]
  - GASTROINTESTINAL HAEMORRHAGE [None]
  - MUSCULOSKELETAL DISCOMFORT [None]
  - SQUAMOUS CELL CARCINOMA [None]
  - COLITIS [None]
  - MALNUTRITION [None]
  - ILEUS PARALYTIC [None]
  - NEUROPATHY PERIPHERAL [None]
  - SKIN BACTERIAL INFECTION [None]
  - PAIN IN EXTREMITY [None]
  - ARTHRALGIA [None]
  - NEOPLASM MALIGNANT [None]
  - OSTEOARTHRITIS [None]
  - ESSENTIAL HYPERTENSION [None]
  - TONGUE DISORDER [None]
  - MENINGIOMA [None]
  - PLEURAL EFFUSION [None]
  - PANIC ATTACK [None]
  - SEPTIC SHOCK [None]
  - TENDONITIS [None]
  - URINARY TRACT INFECTION [None]
  - FUNGAL INFECTION [None]
  - OSTEOPENIA [None]
  - INFECTION [None]
  - PANCYTOPENIA [None]
  - BONE DISORDER [None]
  - DEPRESSED MOOD [None]
  - BRONCHITIS [None]
  - HERPES ZOSTER [None]
  - SUPRAVENTRICULAR TACHYCARDIA [None]
  - DIARRHOEA [None]
  - BONE EROSION [None]
  - BASAL CELL CARCINOMA [None]
  - PNEUMONIA [None]
  - CONSTIPATION [None]
  - COLONIC POLYP [None]
  - POLYP [None]
  - ROSACEA [None]
  - ATROPHY [None]
  - CELLULITIS [None]
  - ACQUIRED DIAPHRAGMATIC EVENTRATION [None]
  - SPINAL COMPRESSION FRACTURE [None]
  - RESPIRATORY FAILURE [None]
  - PLANTAR FASCIITIS [None]
  - SEBORRHOEIC KERATOSIS [None]
  - HYPOTHYROIDISM [None]
  - BONE LESION [None]
  - SKIN ULCER [None]
  - VISION BLURRED [None]
  - CARDIOMEGALY [None]
  - EXOSTOSIS [None]
  - FALL [None]
  - STAPHYLOCOCCAL INFECTION [None]
  - INFECTIOUS PERITONITIS [None]
  - CATARACT [None]
  - MENTAL STATUS CHANGES [None]
  - ATELECTASIS [None]
